FAERS Safety Report 9162889 (Version 1)
Quarter: 2013Q1

REPORT INFORMATION
  Report Type: Spontaneous
  Country: IN (occurrence: IN)
  Receive Date: 20130314
  Receipt Date: 20130314
  Transmission Date: 20140127
  Serious: Yes (Other)
  Sender: FDA-Public Use
  Company Number: IN-GE HEALTHCARE MEDICAL DIAGNOSTICS-OMPQ-NO-1302S-0250

PATIENT
  Age: 52 Year
  Sex: Female

DRUGS (2)
  1. OMNIPAQUE [Suspect]
     Indication: ABDOMINAL PAIN
     Route: 042
     Dates: start: 20130202, end: 20130202
  2. OMNIPAQUE [Suspect]
     Indication: DIAGNOSTIC PROCEDURE

REACTIONS (4)
  - Vomiting [Recovered/Resolved]
  - Convulsion [Recovered/Resolved]
  - Dyspnoea [Unknown]
  - Pulse absent [Unknown]
